FAERS Safety Report 7511640-5 (Version None)
Quarter: 2011Q2

REPORT INFORMATION
  Report Type: 
  Country: None (occurrence: None)
  Receive Date: 20110531
  Receipt Date: 20110525
  Transmission Date: 20111010
  Serious: Yes (Death, Other)
  Sender: FDA-Public Use
  Company Number: US-PFIZER INC-2011012834

PATIENT
  Sex: Male

DRUGS (1)
  1. CHANTIX [Suspect]
     Indication: SMOKING CESSATION THERAPY
     Dosage: UNK
     Dates: start: 20081219, end: 20100731

REACTIONS (5)
  - INTENTIONAL OVERDOSE [None]
  - COMPLETED SUICIDE [None]
  - DEPRESSION [None]
  - CONVULSION [None]
  - AMNESIA [None]
